FAERS Safety Report 12626771 (Version 1)
Quarter: 2016Q3

REPORT INFORMATION
  Report Type: Spontaneous
  Country: JP (occurrence: JP)
  Receive Date: 20160805
  Receipt Date: 20160805
  Transmission Date: 20161109
  Serious: Yes (Other)
  Sender: FDA-Public Use
  Company Number: JP-009507513-1606JPN006637

PATIENT
  Age: 26 Year
  Sex: Male

DRUGS (25)
  1. ETOPOSIDE. [Concomitant]
     Active Substance: ETOPOSIDE
     Dosage: UNK
     Dates: start: 20160421, end: 20160425
  2. ETOPOSIDE. [Concomitant]
     Active Substance: ETOPOSIDE
     Dosage: UNK
     Dates: start: 20160513, end: 20160517
  3. ETOPOSIDE. [Concomitant]
     Active Substance: ETOPOSIDE
     Dosage: 144 MG, UNK
     Dates: start: 20160603, end: 20160607
  4. DEXART [Concomitant]
     Active Substance: DEXAMETHASONE SODIUM PHOSPHATE
     Dosage: UNK
     Dates: start: 20160603, end: 20160607
  5. EMEND [Suspect]
     Active Substance: APREPITANT
     Dosage: 125 MG, ONCE A DAY
     Route: 048
     Dates: start: 20160603, end: 20160603
  6. IFOMIDE [Concomitant]
     Active Substance: IFOSFAMIDE
     Dosage: 2.3 G, UNK
     Dates: start: 20160603, end: 20160607
  7. URSODIOL. [Concomitant]
     Active Substance: URSODIOL
     Dosage: 100 MG, THREE TIMES A DAY
     Dates: start: 20160430
  8. MEYLON [Concomitant]
     Active Substance: SODIUM BICARBONATE
     Dosage: UNK
  9. EMEND [Suspect]
     Active Substance: APREPITANT
     Dosage: 125 MG, ONCE A DAY
     Route: 048
     Dates: start: 20160513, end: 20160513
  10. EMEND [Suspect]
     Active Substance: APREPITANT
     Dosage: 80 MG, ONCE A DAY
     Route: 048
     Dates: start: 20160514, end: 20160517
  11. CISPLATIN. [Suspect]
     Active Substance: CISPLATIN
     Dosage: UNK
     Route: 042
     Dates: start: 20160513, end: 20160517
  12. IFOMIDE [Concomitant]
     Active Substance: IFOSFAMIDE
     Dosage: UNK
     Dates: start: 20160513, end: 20160517
  13. XARELTO [Concomitant]
     Active Substance: RIVAROXABAN
     Dosage: UNK
     Dates: start: 20160512
  14. FAMOTIDINE D [Concomitant]
     Active Substance: FAMOTIDINE
     Dosage: UNK
     Dates: start: 20160421
  15. LORAZEPAM. [Concomitant]
     Active Substance: LORAZEPAM
     Dosage: UNK
  16. CISPLATIN. [Suspect]
     Active Substance: CISPLATIN
     Dosage: 38.5 MG, ONCE A DAY
     Route: 042
     Dates: start: 20160603, end: 20160607
  17. UROMITEXAN [Concomitant]
     Active Substance: MESNA
     Dosage: UNK
     Dates: start: 20160603, end: 20160607
  18. ALOXI [Concomitant]
     Active Substance: PALONOSETRON HYDROCHLORIDE
     Dosage: UNK
  19. CISPLATIN. [Suspect]
     Active Substance: CISPLATIN
     Indication: TESTICULAR YOLK SAC TUMOUR
     Dosage: UNK
     Route: 042
     Dates: start: 20160421, end: 20160425
  20. DECADRON [Concomitant]
     Active Substance: DEXAMETHASONE
     Dosage: UNK
  21. EMEND [Suspect]
     Active Substance: APREPITANT
     Indication: PROPHYLAXIS OF NAUSEA AND VOMITING
     Dosage: 125 MG, ONCE A DAY
     Route: 048
     Dates: start: 20160421, end: 20160421
  22. EMEND [Suspect]
     Active Substance: APREPITANT
     Dosage: 80 MG, ONCE A DAY
     Route: 048
     Dates: start: 20160422, end: 20160425
  23. EMEND [Suspect]
     Active Substance: APREPITANT
     Dosage: 80 MG, ONCE A DAY
     Route: 048
     Dates: start: 20160604, end: 20160607
  24. IFOMIDE [Concomitant]
     Active Substance: IFOSFAMIDE
     Dosage: UNK
     Dates: start: 20160421, end: 20160425
  25. PRIMPERAN [Concomitant]
     Active Substance: METOCLOPRAMIDE HYDROCHLORIDE
     Dosage: UNK

REACTIONS (1)
  - Hepatic function abnormal [Recovered/Resolved]

NARRATIVE: CASE EVENT DATE: 20160610
